FAERS Safety Report 24546502 (Version 1)
Quarter: 2024Q4

REPORT INFORMATION
  Report Type: Spontaneous
  Country: ES (occurrence: ES)
  Receive Date: 20241024
  Receipt Date: 20241024
  Transmission Date: 20250114
  Serious: Yes (Disabling)
  Sender: TEVA
  Company Number: None

PATIENT
  Age: 84 Year
  Sex: Male

DRUGS (3)
  1. LEVOFLOXACIN [Suspect]
     Active Substance: LEVOFLOXACIN
     Indication: Respiratory tract infection
     Dosage: 1-0-1; LEVOFLOXACIN TEVA  EFG  14 TABLETS
     Route: 048
     Dates: start: 20240925, end: 20241002
  2. PREDNISONE [Suspect]
     Active Substance: PREDNISONE
     Indication: Respiratory tract infection
     Dosage: 1-0-0; 30 TABLETS
     Route: 048
     Dates: start: 20240925, end: 20241001
  3. MOXIFLOXACIN [Suspect]
     Active Substance: MOXIFLOXACIN
     Indication: Respiratory tract infection
     Dosage: 1-0-0: MOXIFLOXACIN RATIOPHARM EFG, 7 TABLETS
     Route: 048
     Dates: start: 20240906, end: 20240912

REACTIONS (1)
  - Tendonitis [Recovering/Resolving]

NARRATIVE: CASE EVENT DATE: 20240928
